FAERS Safety Report 17514464 (Version 1)
Quarter: 2020Q1

REPORT INFORMATION
  Report Type: Spontaneous
  Country: US (occurrence: US)
  Receive Date: 20200226
  Receipt Date: 20200226
  Transmission Date: 20200409
  Serious: Yes (Hospitalization)
  Sender: FDA-Public Use
  Company Number: None

PATIENT
  Age: 60 Year
  Sex: Male
  Weight: 87 kg

DRUGS (1)
  1. DICLOFENAC (DICLOFENAC NA 75MG TAB, EC) [Suspect]
     Active Substance: DICLOFENAC
     Indication: PAIN
     Route: 048
     Dates: start: 20200201, end: 20200214

REACTIONS (5)
  - Anaemia [None]
  - Vomiting [None]
  - Dizziness [None]
  - Gastric haemorrhage [None]
  - Nausea [None]

NARRATIVE: CASE EVENT DATE: 20200214
